FAERS Safety Report 15568029 (Version 2)
Quarter: 2018Q4

REPORT INFORMATION
  Report Type: Report from Study
  Country: None (occurrence: HU)
  Receive Date: 20181030
  Receipt Date: 20181227
  Transmission Date: 20190205
  Serious: Yes (Hospitalization)
  Sender: FDA-Public Use
  Company Number: HU-ABBVIE-18P-076-2536801-00

PATIENT
  Age: 69 Year
  Sex: Male
  Weight: 51 kg

DRUGS (16)
  1. MIDERIZON [Concomitant]
     Indication: MUSCLE SPASMS
     Route: 048
     Dates: start: 2008
  2. DUODOPA [Suspect]
     Active Substance: CARBIDOPA\LEVODOPA
     Indication: PARKINSON^S DISEASE
     Dosage: TITRATION: DOSING AT END OF TITRATION: MD: 8.4 ML. CD: 4 ML/H, ED: 1.5 ML., 2X/D, 16 H
     Route: 050
     Dates: start: 20170203, end: 20170207
  3. DICLAC [Concomitant]
     Active Substance: DICLOFENAC
     Indication: PAIN
     Dosage: 50-100 MG
     Route: 048
     Dates: start: 2008
  4. ESOMEPRAZOL [Concomitant]
     Active Substance: ESOMEPRAZOLE
     Indication: GASTRITIS
     Route: 048
     Dates: start: 20180406
  5. DUODOPA [Suspect]
     Active Substance: CARBIDOPA\LEVODOPA
     Dosage: DOSING AT TIME OF EVENT: MD:8.4 ML, CD: 4 ML/H, ED: 2 ML-2X/D, 14 HOURS
     Route: 050
     Dates: start: 20170310, end: 20180327
  6. ASPIRIN. [Concomitant]
     Active Substance: ASPIRIN
     Indication: CEREBROVASCULAR ACCIDENT
     Route: 048
     Dates: start: 200808
  7. VALSOTENS [Concomitant]
     Active Substance: VALSARTAN
     Indication: HYPERTENSION
     Route: 048
     Dates: start: 2008
  8. TRAMADOLOR [Concomitant]
     Active Substance: TRAMADOL
     Indication: PAIN
     Dosage: 50-100 MG
     Route: 048
     Dates: start: 2008
  9. ALGOFLEX FORTE [Concomitant]
     Indication: PAIN
     Route: 048
     Dates: start: 201803
  10. BREXIN [Concomitant]
     Indication: PAIN
     Route: 048
     Dates: start: 2008
  11. ATORVA TEVA [Concomitant]
     Indication: CEREBROVASCULAR ACCIDENT
     Route: 048
     Dates: start: 200808
  12. QUAMATEL [Concomitant]
     Active Substance: FAMOTIDINE
     Indication: GASTRITIS PROPHYLAXIS
     Route: 048
     Dates: start: 200808, end: 20180406
  13. LEVODOPA/CARBIDOPA/ENTACAPONE [Concomitant]
     Active Substance: CARBIDOPA\ENTACAPONE\LEVODOPA
     Indication: PARKINSON^S DISEASE
     Dosage: 150/37.5/200 MG
     Route: 048
     Dates: start: 2008, end: 20170203
  14. DUODOPA [Suspect]
     Active Substance: CARBIDOPA\LEVODOPA
     Route: 050
     Dates: start: 20180408
  15. LEVODOPA/CARBIDOPA/ENTACAPONE [Concomitant]
     Active Substance: CARBIDOPA\ENTACAPONE\LEVODOPA
     Dosage: 100/25/200 MG
     Route: 048
     Dates: start: 20170205
  16. SABALLO [Concomitant]
     Indication: MICTURITION URGENCY
     Route: 048
     Dates: start: 201706

REACTIONS (3)
  - Micturition urgency [Not Recovered/Not Resolved]
  - Hallucination [Not Recovered/Not Resolved]
  - Embedded device [Recovered/Resolved]

NARRATIVE: CASE EVENT DATE: 20170601
